FAERS Safety Report 8252798-2 (Version None)
Quarter: 2012Q2

REPORT INFORMATION
  Report Type: 
  Country: None (occurrence: None)
  Receive Date: 20120402
  Receipt Date: 20111221
  Transmission Date: 20120825
  Serious: No
  Sender: FDA-Public Use
  Company Number: US-ABBOTT-11P-163-0885634-00

PATIENT
  Sex: Male
  Weight: 111.23 kg

DRUGS (5)
  1. ANDROGEL [Suspect]
     Indication: BLOOD TESTOSTERONE DECREASED
     Dosage: 4 PUMPS, 1 IN 1 DAY
  2. COQ10 [Concomitant]
     Indication: VITAMIN SUPPLEMENTATION
  3. VITAMIN TAB [Concomitant]
     Indication: VITAMIN SUPPLEMENTATION
  4. ASPIRIN [Concomitant]
     Indication: PRODUCT USED FOR UNKNOWN INDICATION
  5. ANDROGEL [Suspect]
     Indication: BLOOD TESTOSTERONE DECREASED
     Dosage: 2 PUMPS, 2 IN 1 DAY
     Dates: start: 20110301

REACTIONS (7)
  - CHEST DISCOMFORT [None]
  - MUSCLE SPASMS [None]
  - ANXIETY [None]
  - HYPERHIDROSIS [None]
  - BLOOD PRESSURE INCREASED [None]
  - INSOMNIA [None]
  - HOT FLUSH [None]
